FAERS Safety Report 22923736 (Version 2)
Quarter: 2024Q3

REPORT INFORMATION
  Report Type: Spontaneous
  Country: US (occurrence: None)
  Receive Date: 20230908
  Receipt Date: 20240906
  Transmission Date: 20241016
  Serious: No
  Sender: DOMPE FARMACEUTICI
  Company Number: US-FARMAPROD-202209-1916

PATIENT
  Age: 72 Year
  Sex: Female

DRUGS (25)
  1. OXERVATE [Suspect]
     Active Substance: CENEGERMIN-BKBJ
     Indication: Neurotrophic keratopathy
     Route: 047
     Dates: start: 20210610, end: 20210816
  2. OXERVATE [Suspect]
     Active Substance: CENEGERMIN-BKBJ
     Route: 047
     Dates: start: 20210802
  3. OXERVATE [Suspect]
     Active Substance: CENEGERMIN-BKBJ
     Route: 047
     Dates: start: 20220920, end: 20221114
  4. OXERVATE [Suspect]
     Active Substance: CENEGERMIN-BKBJ
     Route: 047
     Dates: start: 20240304
  5. OXERVATE [Suspect]
     Active Substance: CENEGERMIN-BKBJ
  6. OXERVATE [Suspect]
     Active Substance: CENEGERMIN-BKBJ
  7. OXERVATE [Suspect]
     Active Substance: CENEGERMIN-BKBJ
  8. SYSTANE (HYPROMELLOSE 2910 (4000 MPA.S)) [Concomitant]
     Active Substance: HYPROMELLOSE 2910 (4000 MPA.S)
     Dosage: 0.3 %-0.4%
  9. SIMILASAN FOR INFLAMMATION OF THE MOUTH AND THROAT [Concomitant]
     Active Substance: HOMEOPATHICS
  10. ALGAECAL PLUS [Concomitant]
  11. MILK OF MAGNESIA [Concomitant]
     Active Substance: MAGNESIUM HYDROXIDE
  12. PROBIOTICS NOS [Concomitant]
     Active Substance: PROBIOTICS NOS
     Dosage: 100 BILLION CELL
  13. VITAMIN B COMPLEX [Concomitant]
     Active Substance: CYANOCOBALAMIN\DEXPANTHENOL\NIACINAMIDE\PYRIDOXINE HYDROCHLORIDE\RIBOFLAVIN 5^-PHOSPHATE SODIUM\THIA
  14. COD LIVER OIL [Concomitant]
     Active Substance: COD LIVER OIL
     Dosage: OIL
  15. HERBALS\TURMERIC [Concomitant]
     Active Substance: HERBALS\TURMERIC
  16. MENAQUINONE 6 [Concomitant]
     Active Substance: MENAQUINONE 6
  17. VITAMIN D3 [Concomitant]
     Active Substance: CHOLECALCIFEROL
     Dosage: 10(400)/ML
  18. ASCORBIC ACID [Concomitant]
     Active Substance: ASCORBIC ACID
  19. STRONTIUM NITRATE [Concomitant]
     Active Substance: STRONTIUM NITRATE
     Dosage: CRYSTALS
  20. XIIDRA [Concomitant]
     Active Substance: LIFITEGRAST
  21. MINERALS\OMEGA-3 FATTY ACIDS\VITAMINS [Concomitant]
     Active Substance: MINERALS\OMEGA-3 FATTY ACIDS\VITAMINS
  22. PEPPERMINT OIL [Concomitant]
     Active Substance: PEPPERMINT OIL
     Indication: Nasal congestion
  23. ALKALOL [Concomitant]
  24. CLARITIN-D NOS [Concomitant]
     Active Substance: LORATADINE\PSEUDOEPHEDRINE SULFATE
     Indication: Seasonal allergy
     Dosage: 12 HOUR
  25. BOTOX [Concomitant]
     Active Substance: ONABOTULINUMTOXINA
     Dosage: VIAL

REACTIONS (7)
  - Eye pain [Not Recovered/Not Resolved]
  - Ocular hyperaemia [Unknown]
  - Disease progression [Unknown]
  - Gingival pain [Unknown]
  - Dental discomfort [Unknown]
  - Periorbital pain [Unknown]
  - Photophobia [Unknown]

NARRATIVE: CASE EVENT DATE: 20240301
